FAERS Safety Report 4263709-9 (Version None)
Quarter: 2004Q1

REPORT INFORMATION
  Report Type: 
  Country: None (occurrence: None)
  Receive Date: 20040102
  Receipt Date: 20031112
  Transmission Date: 20041129
  Serious: Yes (Other)
  Sender: FDA-Public Use
  Company Number: JP-JNJFOC-20031205184

PATIENT
  Age: 62 Year
  Sex: Male

DRUGS (8)
  1. REMICADE [Suspect]
     Indication: RHEUMATOID ARTHRITIS
     Dosage: 189 MG, 1 IN 1 AS NECESSARY, INTRAVENOUS
     Route: 042
     Dates: start: 20031029, end: 20031029
  2. DICLOFENAC SODIUM [Concomitant]
  3. TEPRENONE (TEPRENONE) [Concomitant]
  4. LANSOPRAZOLE [Concomitant]
  5. PREDNISOLONE [Concomitant]
  6. KETOPROFEN [Concomitant]
  7. MIZORIBINE (MIZORIBINE) [Concomitant]
  8. METHOTREXATE [Concomitant]

REACTIONS (2)
  - HAEMATURIA [None]
  - TINEA BLANCA [None]
